FAERS Safety Report 23309200 (Version 1)
Quarter: 2023Q4

REPORT INFORMATION
  Report Type: Spontaneous
  Country: JP (occurrence: None)
  Receive Date: 20231218
  Receipt Date: 20231218
  Transmission Date: 20240110
  Serious: Yes (Life-Threatening, Other)
  Sender: FDA-Public Use
  Company Number: 2023A285394

PATIENT
  Age: 79 Year
  Sex: Male
  Weight: 49 kg

DRUGS (7)
  1. TAGRISSO [Suspect]
     Active Substance: OSIMERTINIB
     Indication: Non-small cell lung cancer
     Route: 048
     Dates: start: 20230913, end: 20231111
  2. VONOPRAZAN FUMARATE [Concomitant]
     Active Substance: VONOPRAZAN FUMARATE
     Dosage: DOSE UNKNOWN
     Route: 048
  3. PRASUGREL HYDROCHLORIDE [Concomitant]
     Active Substance: PRASUGREL HYDROCHLORIDE
     Dosage: DOSE UNKNOWN
     Route: 048
  4. ROSUVASTATIN [Concomitant]
     Active Substance: ROSUVASTATIN
     Dosage: DOSE UNKNOWN
     Route: 048
  5. TELMISARTAN [Concomitant]
     Active Substance: TELMISARTAN
     Dosage: DOSE UNKNOWN
     Route: 048
  6. RIBOFLAVIN [Concomitant]
     Active Substance: RIBOFLAVIN
     Dosage: DOSE UNKNOWN
     Route: 048
  7. PYRIDOXAL [Concomitant]
     Active Substance: PYRIDOXAL
     Dosage: DOSE UNKNOWN
     Route: 048

REACTIONS (5)
  - Respiratory failure [Recovering/Resolving]
  - Cough [Recovering/Resolving]
  - Dyspnoea exertional [Unknown]
  - Pyrexia [Unknown]
  - Interstitial lung disease [Unknown]

NARRATIVE: CASE EVENT DATE: 20231109
